FAERS Safety Report 5948041-7 (Version None)
Quarter: 2008Q4

REPORT INFORMATION
  Report Type: 
  Country: None (occurrence: None)
  Receive Date: 20081111
  Receipt Date: 20081106
  Transmission Date: 20090506
  Serious: Yes (Hospitalization, Other)
  Sender: FDA-Public Use
  Company Number: FR-BRISTOL-MYERS SQUIBB COMPANY-14371751

PATIENT
  Age: 71 Year
  Sex: Female
  Weight: 59 kg

DRUGS (4)
  1. PRAVASTATIN SODIUM [Suspect]
     Indication: CAROTID ARTERIOSCLEROSIS
     Dates: start: 20030728, end: 20081001
  2. PRAVASTATIN SODIUM [Suspect]
     Indication: HYPERCHOLESTEROLAEMIA
     Dates: start: 20030728, end: 20081001
  3. KARDEGIC [Concomitant]
     Indication: ARTERITIS
     Route: 048
     Dates: start: 20021126
  4. ISOPTIN [Concomitant]
     Route: 048
     Dates: start: 20050824

REACTIONS (1)
  - INTERSTITIAL LUNG DISEASE [None]
